FAERS Safety Report 8761890 (Version 2)
Quarter: 2012Q4

REPORT INFORMATION
  Report Type: 
  Country: US (occurrence: US)
  Receive Date: 20120829
  Receipt Date: 20120905
  Transmission Date: 20130627
  Serious: Yes (Other)
  Sender: FDA-Public Use
  Company Number: US-PFIZER INC-2012210402

PATIENT
  Age: 54 Year
  Sex: Female
  Weight: 73.5 kg

DRUGS (3)
  1. PROTONIX [Suspect]
     Indication: DYSPEPSIA
     Dosage: 40 mg, 2x/day
     Route: 048
  2. PROCARDIA [Suspect]
     Indication: HYPERTENSION
     Dosage: 30 mg, 2x/day
     Route: 048
  3. METOPROLOL [Concomitant]
     Indication: CARDIAC DISORDER
     Dosage: UNK
     Route: 048

REACTIONS (4)
  - Cardiac failure congestive [Not Recovered/Not Resolved]
  - Pulmonary hypertension [Not Recovered/Not Resolved]
  - Coronary artery thrombosis [Not Recovered/Not Resolved]
  - Atrial fibrillation [Not Recovered/Not Resolved]
